FAERS Safety Report 20172337 (Version 1)
Quarter: 2021Q4

REPORT INFORMATION
  Report Type: Spontaneous
  Country: IN (occurrence: IN)
  Receive Date: 20211210
  Receipt Date: 20211210
  Transmission Date: 20220303
  Serious: Yes (Death)
  Sender: FDA-Public Use
  Company Number: IN-GE HEALTHCARE-2021CSU006198

PATIENT

DRUGS (2)
  1. OMNIPAQUE [Suspect]
     Active Substance: IOHEXOL
     Indication: Angiogram peripheral
     Dosage: 100 ML, SINGLE
     Route: 042
     Dates: start: 20211204, end: 20211204
  2. OMNIPAQUE [Suspect]
     Active Substance: IOHEXOL
     Indication: Peripheral vascular disorder

REACTIONS (1)
  - Seizure [Fatal]

NARRATIVE: CASE EVENT DATE: 20211204
